FAERS Safety Report 5429204-6 (Version None)
Quarter: 2007Q3

REPORT INFORMATION
  Report Type: 
  Country: None (occurrence: None)
  Receive Date: 20070827
  Receipt Date: 20070827
  Transmission Date: 20080115
  Serious: Yes (Life-Threatening)
  Sender: FDA-Public Use
  Company Number: None

PATIENT
  Sex: Female
  Weight: 58.9676 kg

DRUGS (1)
  1. ARAVA [Suspect]
     Indication: ARTHRITIS
     Dates: start: 20070701, end: 20070710

REACTIONS (4)
  - HAEMODYNAMIC INSTABILITY [None]
  - PNEUMONIA ASPIRATION [None]
  - STEVENS-JOHNSON SYNDROME [None]
  - TOXIC EPIDERMAL NECROLYSIS [None]
